FAERS Safety Report 9295426 (Version 1)
Quarter: 2013Q2

REPORT INFORMATION
  Report Type: Spontaneous
  Country: SG (occurrence: SG)
  Receive Date: 20130517
  Receipt Date: 20130517
  Transmission Date: 20140414
  Serious: Yes (Other)
  Sender: FDA-Public Use
  Company Number: SG-009507513-1305SGP009773

PATIENT
  Sex: Female

DRUGS (1)
  1. FOSAMAX TAB 10 MG [Suspect]

REACTIONS (2)
  - Dermatitis bullous [Unknown]
  - Pain in extremity [Unknown]
